FAERS Safety Report 4377901-6 (Version None)
Quarter: 2004Q2

REPORT INFORMATION
  Report Type: 
  Country: None (occurrence: None)
  Receive Date: 20040615
  Receipt Date: 20040615
  Transmission Date: 20050107
  Serious: Yes (Death)
  Sender: FDA-Public Use
  Company Number: None

PATIENT
  Sex: Male
  Weight: 54.7 kg

DRUGS (6)
  1. GEMCITABINE [Suspect]
     Indication: PANCREATIC CARCINOMA
     Dosage: Q WEEK X 3 IV
     Route: 042
     Dates: start: 20040524
  2. GEMCITABINE [Suspect]
     Indication: PANCREATIC CARCINOMA
     Dosage: Q WEEK X 3 IV
     Route: 042
     Dates: start: 20040601
  3. GEMCITABINE [Suspect]
     Indication: PANCREATIC CARCINOMA
     Dosage: Q WEEK X 3 IV
     Route: 042
     Dates: start: 20040609
  4. OXYCONTIN [Concomitant]
  5. PERCOCET [Concomitant]
  6. COMPAZINE [Concomitant]

REACTIONS (2)
  - CHEST PAIN [None]
  - DYSPNOEA [None]
